FAERS Safety Report 6157589-4 (Version None)
Quarter: 2009Q2

REPORT INFORMATION
  Report Type: 
  Country: None (occurrence: None)
  Receive Date: 20090416
  Receipt Date: 20090410
  Transmission Date: 20091009
  Serious: Yes (Death)
  Sender: FDA-Public Use
  Company Number: US-WATSON-2009-02455

PATIENT
  Sex: Male
  Weight: 137.43 kg

DRUGS (8)
  1. ANDRODERM [Suspect]
     Indication: HYPOGONADISM MALE
     Dosage: 5 MG, 1 PATCH, DAILY
     Route: 062
     Dates: start: 20080609, end: 20090201
  2. OPANA ER [Suspect]
     Indication: RHEUMATOID ARTHRITIS
     Dosage: 30 MG, Q12H
     Route: 048
     Dates: start: 20090202, end: 20090201
  3. OPANA ER [Suspect]
     Indication: MYALGIA
  4. FLUOXETINE [Suspect]
     Indication: DEPRESSION
     Dosage: 40 MG, 1 DAILY
     Route: 048
     Dates: start: 20071008, end: 20090201
  5. LISINOPRIL AND HYDROCHLOROTHIAZIDE [Suspect]
     Indication: HYPERTENSION
     Dosage: 20 MG/12.5 MG, 1 TAB DAILY
     Route: 048
     Dates: start: 20080404, end: 20090201
  6. NABUMETONE [Suspect]
     Indication: ARTHRITIS
     Dosage: 750 MG, 1 TAB  BID
     Route: 048
     Dates: start: 20070619, end: 20090201
  7. LORATADINE [Suspect]
     Indication: RHINITIS ALLERGIC
     Dosage: 10 MG, 1 TAB, DAILY
     Route: 048
     Dates: start: 20081031, end: 20090201
  8. FOLIC ACID [Suspect]
     Indication: DRUG USE FOR UNKNOWN INDICATION
     Dosage: 1 MG, 1 DAILY
     Route: 048
     Dates: start: 20070417, end: 20090201

REACTIONS (2)
  - DEATH [None]
  - PAIN [None]
